FAERS Safety Report 5149876-3 (Version None)
Quarter: 2006Q4

REPORT INFORMATION
  Report Type: 
  Country: None (occurrence: None)
  Receive Date: 20061113
  Receipt Date: 20061108
  Transmission Date: 20070319
  Serious: Yes (Death, Other)
  Sender: FDA-Public Use
  Company Number: AU-BRISTOL-MYERS SQUIBB COMPANY-13570353

PATIENT
  Age: 58 Year
  Sex: Female
  Weight: 110 kg

DRUGS (7)
  1. AVAPRO [Suspect]
     Route: 048
  2. METFORMIN HCL [Suspect]
     Route: 048
  3. METOPROLOL TARTRATE [Suspect]
     Route: 048
  4. COVERSYL PLUS [Suspect]
     Route: 048
  5. GLIMEPIRIDE [Suspect]
     Route: 048
  6. MOBIC [Suspect]
     Route: 048
  7. OMEPRAZOLE [Suspect]
     Route: 048

REACTIONS (11)
  - ABDOMINAL PAIN [None]
  - CIRCULATORY COLLAPSE [None]
  - HYPERKALAEMIA [None]
  - HYPERVENTILATION [None]
  - HYPOGLYCAEMIA [None]
  - HYPOTENSION [None]
  - LACTIC ACIDOSIS [None]
  - LEUKOCYTOSIS [None]
  - NAUSEA [None]
  - RENAL FAILURE [None]
  - VOMITING [None]
